FAERS Safety Report 17787856 (Version 1)
Quarter: 2020Q2

REPORT INFORMATION
  Report Type: Spontaneous
  Country: US (occurrence: US)
  Receive Date: 20200514
  Receipt Date: 20200514
  Transmission Date: 20200714
  Serious: No
  Sender: FDA-Public Use
  Company Number: US-009507513-2005USA004301

PATIENT
  Sex: Male
  Weight: 139.25 kg

DRUGS (1)
  1. SINEMET [Suspect]
     Active Substance: CARBIDOPA\LEVODOPA
     Indication: NERVE INJURY
     Dosage: UNK
     Route: 048

REACTIONS (1)
  - Disturbance in attention [Unknown]
